FAERS Safety Report 8127295-5 (Version None)
Quarter: 2012Q1

REPORT INFORMATION
  Report Type: 
  Country: None (occurrence: None)
  Receive Date: 20120210
  Receipt Date: 20120206
  Transmission Date: 20120608
  Serious: Yes (Life-Threatening, Hospitalization)
  Sender: FDA-Public Use
  Company Number: US-BAYER-2011-030202

PATIENT
  Age: 35 Year
  Sex: Female
  Weight: 71 kg

DRUGS (5)
  1. YAZ [Suspect]
     Indication: CONTRACEPTION
     Dosage: UNK
     Dates: start: 20050101, end: 20090829
  2. ASCORBIC ACID [Concomitant]
     Dosage: DAILY
     Route: 048
     Dates: start: 20030101, end: 20090101
  3. YASMIN [Suspect]
     Indication: CONTRACEPTION
     Dosage: UNK
     Dates: start: 20050101, end: 20090829
  4. PROZAC [Concomitant]
     Indication: ANXIETY
     Dosage: UNK
     Route: 048
     Dates: start: 20010101, end: 20090101
  5. MULTI-VITAMIN [Concomitant]
     Dosage: DAILY
     Route: 048
     Dates: start: 20010101, end: 20090101

REACTIONS (6)
  - ANHEDONIA [None]
  - BACK PAIN [None]
  - PULMONARY EMBOLISM [None]
  - PAIN [None]
  - ANXIETY [None]
  - DYSPNOEA [None]
